FAERS Safety Report 6123351-1 (Version None)
Quarter: 2009Q1

REPORT INFORMATION
  Report Type: 
  Country: None (occurrence: None)
  Receive Date: 20090318
  Receipt Date: 20090310
  Transmission Date: 20090719
  Serious: Yes (Other)
  Sender: FDA-Public Use
  Company Number: US-BAXTER-2009BH004001

PATIENT

DRUGS (2)
  1. DEXTROSE 5% AND SODIUM CHLORIDE 0.45% IN PLASTIC CONTAINER [Suspect]
     Indication: PROPHYLAXIS AGAINST DEHYDRATION
     Route: 042
     Dates: start: 20090101
  2. POTASSIUM CHLORIDE 0.15% IN DEXTROSE 5% [Suspect]
     Indication: PROPHYLAXIS AGAINST DEHYDRATION
     Route: 042
     Dates: start: 20090101

REACTIONS (2)
  - DEVICE MALFUNCTION [None]
  - HAEMORRHAGE [None]
